FAERS Safety Report 9157366 (Version 1)
Quarter: 2013Q1

REPORT INFORMATION
  Report Type: Spontaneous
  Country: US (occurrence: None)
  Receive Date: 20130308
  Receipt Date: 20130308
  Transmission Date: 20140127
  Serious: Yes (Death)
  Sender: FDA-Public Use
  Company Number: 2013AP003367

PATIENT
  Sex: Male

DRUGS (3)
  1. AMLODIPINE BESYLATE TABLETS [Suspect]
  2. FENTANYL [Suspect]
  3. METOPROLOL [Suspect]

REACTIONS (1)
  - Toxicity to various agents [None]
